FAERS Safety Report 17195395 (Version 1)
Quarter: 2019Q4

REPORT INFORMATION
  Report Type: Spontaneous
  Country: PL (occurrence: PL)
  Receive Date: 20191224
  Receipt Date: 20191224
  Transmission Date: 20200122
  Serious: Yes (Hospitalization)
  Sender: FDA-Public Use
  Company Number: PL-TEVA-2019-PL-1155477

PATIENT
  Age: 45 Year
  Sex: Female
  Weight: 54 kg

DRUGS (3)
  1. PACLITAXEL 6MG/ML CONCENTRATE FOR SOLUTION FOR INFUSION [Suspect]
     Active Substance: PACLITAXEL
     Indication: BREAST NEOPLASM
     Dosage: 127 MG
     Route: 042
     Dates: start: 20160713, end: 20160713
  2. SOLVERTYL [Concomitant]
     Indication: BREAST CANCER FEMALE
     Dosage: 50 MG
     Route: 042
     Dates: start: 20160713, end: 20160713
  3. CLEMASTIN [Concomitant]
     Active Substance: CLEMASTINE
     Indication: BREAST CANCER FEMALE
     Dosage: 2 MG
     Route: 042
     Dates: start: 20160713, end: 20160713

REACTIONS (2)
  - Anxiety [Recovered/Resolved]
  - Erythema [Recovered/Resolved]

NARRATIVE: CASE EVENT DATE: 20160713
